FAERS Safety Report 7357345-5 (Version None)
Quarter: 2011Q1

REPORT INFORMATION
  Report Type: 
  Country: None (occurrence: None)
  Receive Date: 20110317
  Receipt Date: 20110310
  Transmission Date: 20110831
  Serious: Yes (Hospitalization)
  Sender: FDA-Public Use
  Company Number: JP-AMGEN-JPNSP2011013800

PATIENT
  Age: 56 Year
  Sex: Female

DRUGS (6)
  1. CALCITAMIN [Concomitant]
     Dosage: UNK
  2. RHEUMATREX [Suspect]
     Dosage: UNK
     Route: 048
  3. ZALTOPROFEN [Concomitant]
     Dosage: UNK
  4. FOLIAMIN [Concomitant]
     Dosage: UNK
  5. ALOSITOL [Concomitant]
     Dosage: UNK
  6. ENBREL [Suspect]
     Indication: RHEUMATOID ARTHRITIS
     Dosage: 50 MG, WEEKLY
     Route: 058
     Dates: start: 20061110

REACTIONS (1)
  - LARGE INTESTINE CARCINOMA [None]
